FAERS Safety Report 15202101 (Version 1)
Quarter: 2018Q3

REPORT INFORMATION
  Report Type: Report from Study
  Country: BR (occurrence: BR)
  Receive Date: 20180726
  Receipt Date: 20180726
  Transmission Date: 20181010
  Serious: Yes (Other)
  Sender: FDA-Public Use
  Company Number: BR-JNJFOC-20180726262

PATIENT
  Sex: Female

DRUGS (2)
  1. REMICADE [Suspect]
     Active Substance: INFLIXIMAB
     Indication: ANKYLOSING SPONDYLITIS
     Route: 042
     Dates: start: 201612, end: 201612
  2. REMICADE [Suspect]
     Active Substance: INFLIXIMAB
     Indication: ANKYLOSING SPONDYLITIS
     Route: 042
     Dates: start: 2016

REACTIONS (9)
  - Dry mouth [Unknown]
  - Oropharyngeal pain [Not Recovered/Not Resolved]
  - Infusion related reaction [Unknown]
  - Ankylosing spondylitis [Not Recovered/Not Resolved]
  - Abdominal distension [Unknown]
  - Heart rate increased [Unknown]
  - Liver disorder [Unknown]
  - Tuberculosis [Recovered/Resolved]
  - Nephrolithiasis [Unknown]

NARRATIVE: CASE EVENT DATE: 2016
